FAERS Safety Report 9008640 (Version 2)
Quarter: 2013Q1

REPORT INFORMATION
  Report Type: Spontaneous
  Country: FR (occurrence: FR)
  Receive Date: 20130111
  Receipt Date: 20130311
  Transmission Date: 20140127
  Serious: Yes (Life-Threatening, Hospitalization, Other)
  Sender: FDA-Public Use
  Company Number: FR-BRISTOL-MYERS SQUIBB COMPANY-17257262

PATIENT
  Age: 31 Year
  Sex: Female

DRUGS (15)
  1. REYATAZ CAPS [Suspect]
     Route: 048
     Dates: start: 201012
  2. NORVIR [Interacting]
     Route: 048
     Dates: start: 201012
  3. TAXOTERE [Interacting]
     Route: 042
     Dates: start: 20120912
  4. TAZOCILLINE [Suspect]
  5. CIFLOX [Suspect]
  6. BACTRIM [Suspect]
  7. CANCIDAS [Suspect]
  8. ERYTHROCINE [Suspect]
  9. TRUVADA [Concomitant]
     Dates: start: 201012
  10. FLUOROURACIL [Concomitant]
     Dates: start: 201207, end: 201208
  11. EPIRUBICIN [Concomitant]
     Dates: start: 201207, end: 201208
  12. CYCLOPHOSPHAMIDE [Concomitant]
     Dates: start: 201207, end: 201208
  13. IMOVANE [Concomitant]
  14. EUPANTOL [Concomitant]
  15. DAFALGAN CODEINE [Concomitant]
     Dates: start: 20120912

REACTIONS (5)
  - Septic shock [Recovering/Resolving]
  - Bone marrow failure [Recovering/Resolving]
  - Rash generalised [Recovering/Resolving]
  - Skin exfoliation [Recovering/Resolving]
  - Drug interaction [Recovering/Resolving]
